FAERS Safety Report 20426149 (Version 1)
Quarter: 2022Q1

REPORT INFORMATION
  Report Type: Report from Study
  Country: US (occurrence: US)
  Receive Date: 20220204
  Receipt Date: 20220204
  Transmission Date: 20220423
  Serious: No
  Sender: FDA-Public Use
  Company Number: US-EXELIXIS-CABO-21041609

PATIENT
  Age: 50 Year
  Sex: Male

DRUGS (3)
  1. CABOMETYX [Suspect]
     Active Substance: CABOZANTINIB S-MALATE
     Indication: Renal cancer
     Dosage: 60 MG, QD
     Route: 048
     Dates: start: 20210528
  2. CABOMETYX [Suspect]
     Active Substance: CABOZANTINIB S-MALATE
     Dosage: TOOK AN EXTRA DOSE
     Route: 048
     Dates: start: 20211003, end: 20211003
  3. CABOMETYX [Suspect]
     Active Substance: CABOZANTINIB S-MALATE
     Dosage: 60 MG, QD
     Route: 048
     Dates: start: 20211004

REACTIONS (3)
  - Eosinophil percentage increased [Unknown]
  - Rash [Unknown]
  - Accidental overdose [Unknown]

NARRATIVE: CASE EVENT DATE: 20211003
